FAERS Safety Report 16059840 (Version 1)
Quarter: 2019Q2

REPORT INFORMATION
  Report Type: Spontaneous
  Country: US (occurrence: US)
  Receive Date: 20190311
  Receipt Date: 20190311
  Transmission Date: 20190711
  Serious: Yes (Other)
  Sender: FDA-Public Use
  Company Number: None

PATIENT
  Age: 51 Year
  Sex: Female
  Weight: 71 kg

DRUGS (10)
  1. MELATONIN [Concomitant]
     Active Substance: MELATONIN
     Dates: start: 20190213, end: 20190304
  2. OMEPRAZOLE. [Concomitant]
     Active Substance: OMEPRAZOLE
     Dates: start: 20190216
  3. NITROGLYCERIN CONTINUOUS INFUSION [Concomitant]
     Dates: start: 20190219, end: 20190228
  4. FLUTICASONE INHALER [Concomitant]
     Dates: start: 20190209
  5. CEFAZOLIN [Concomitant]
     Active Substance: CEFAZOLIN
     Dates: start: 20190222, end: 20190304
  6. HEPARIN CONTINUOUS INFUSION [Concomitant]
     Dates: start: 20190211
  7. CLEVIDIPINE [Suspect]
     Active Substance: CLEVIDIPINE
     Indication: HYPERTENSION
     Dosage: ?          OTHER FREQUENCY:CONTINUOUSINFUSION;?
     Route: 041
     Dates: start: 20190211, end: 20190228
  8. POLYETHYLENE GLYCOL [Concomitant]
     Active Substance: POLYETHYLENE GLYCOLS
     Dates: start: 20190217
  9. BUMETANIDE CONTINUOUS INFUSION [Concomitant]
     Dates: start: 20190221, end: 20190302
  10. CHOLECALCIFEROL [Concomitant]
     Active Substance: CHOLECALCIFEROL
     Dates: start: 20190209

REACTIONS (4)
  - Incorrect dose administered by device [None]
  - Infusion related reaction [None]
  - Complication associated with device [None]
  - Pancreatitis [None]

NARRATIVE: CASE EVENT DATE: 20190228
